FAERS Safety Report 4341167-3 (Version None)
Quarter: 2004Q2

REPORT INFORMATION
  Report Type: 
  Country: None (occurrence: None)
  Receive Date: 20040419
  Receipt Date: 20040407
  Transmission Date: 20050107
  Serious: Yes (Hospitalization)
  Sender: FDA-Public Use
  Company Number: FR-GLAXOSMITHKLINE-B0329561A

PATIENT
  Age: 49 Year
  Sex: Male

DRUGS (5)
  1. EPIVIR [Suspect]
     Indication: HIV INFECTION
     Dosage: 1UNIT PER DAY
     Route: 048
     Dates: start: 20030428
  2. VIDEX [Suspect]
     Indication: HIV INFECTION
     Dosage: 1UNIT PER DAY
     Route: 048
     Dates: start: 20030428, end: 20030524
  3. RIMIFON [Suspect]
     Indication: MYCOBACTERIUM KANSASII INFECTION
     Dosage: 300MG PER DAY
     Route: 048
     Dates: start: 20020624
  4. MYAMBUTOL [Concomitant]
     Indication: MYCOBACTERIUM KANSASII INFECTION
     Route: 065
     Dates: start: 20020624
  5. ANSATIPINE [Concomitant]
     Indication: MYCOBACTERIUM KANSASII INFECTION
     Route: 065
     Dates: start: 20020624

REACTIONS (2)
  - NEUROPATHY PERIPHERAL [None]
  - PARAESTHESIA [None]
